FAERS Safety Report 9722336 (Version 1)
Quarter: 2013Q4

REPORT INFORMATION
  Report Type: Report from Study
  Country: EG (occurrence: EG)
  Receive Date: 20131202
  Receipt Date: 20131202
  Transmission Date: 20140711
  Serious: Yes (Death)
  Sender: FDA-Public Use
  Company Number: EG-SA-2013SA123301

PATIENT
  Age: 55 Year
  Sex: Female

DRUGS (1)
  1. LANTUS [Suspect]
     Indication: TYPE 2 DIABETES MELLITUS
     Dosage: DOSE: 35 IU/DAY TO 38 IU/DAY
     Route: 058
     Dates: start: 20130330, end: 20130818

REACTIONS (1)
  - Breast cancer [Fatal]
